FAERS Safety Report 8340807-1 (Version None)
Quarter: 2012Q2

REPORT INFORMATION
  Report Type: 
  Country: None (occurrence: None)
  Receive Date: 20120507
  Receipt Date: 20120501
  Transmission Date: 20120825
  Serious: Yes (Life-Threatening, Hospitalization)
  Sender: FDA-Public Use
  Company Number: US-CELGENEUS-163-C5013-11101703

PATIENT
  Sex: Male
  Weight: 77.5 kg

DRUGS (33)
  1. DECADRON [Concomitant]
     Dosage: 8 MILLIGRAM
     Route: 048
     Dates: start: 20111025, end: 20111027
  2. ROCEPHIN [Concomitant]
     Dosage: 1000 MILLIGRAM
     Route: 041
     Dates: start: 20111121, end: 20111121
  3. PREDNISONE [Suspect]
     Dosage: 5 MILLIGRAM
     Route: 048
     Dates: start: 20110901
  4. AUGMENTIN [Concomitant]
     Indication: LARYNGITIS
     Route: 065
     Dates: start: 20110101
  5. MAGNESIUM [Concomitant]
     Indication: SUPPLEMENTATION THERAPY
     Dosage: 50 MILLILITER
     Route: 041
     Dates: start: 20110915, end: 20110915
  6. LENALIDOMIDE [Suspect]
     Dosage: 25 MILLIGRAM
     Route: 048
     Dates: start: 20110901, end: 20110914
  7. ASPIRIN [Concomitant]
     Indication: PROPHYLAXIS
     Dosage: 81 MILLIGRAM
     Route: 048
     Dates: start: 20110811
  8. PERCOCET [Concomitant]
     Indication: BACK PAIN
     Dosage: 5MG-325MG
     Route: 048
     Dates: start: 20110310, end: 20110901
  9. DECADRON [Concomitant]
     Dosage: 8 MILLIGRAM
     Route: 048
     Dates: start: 20110830, end: 20110902
  10. CIPROFLOXACIN HCL [Concomitant]
     Indication: PROPHYLAXIS
     Dosage: 500 MILLIGRAM
     Route: 048
     Dates: start: 20110929, end: 20111121
  11. CEFTRIAXONE [Concomitant]
     Indication: SEPSIS
     Dosage: 1 GRAM
     Route: 041
     Dates: start: 20110919, end: 20110923
  12. DOCETAXEL [Suspect]
     Dosage: 140 MILLIGRAM
     Route: 041
     Dates: start: 20111005
  13. ZOMETA [Concomitant]
     Dosage: 4 MILLIGRAM
     Route: 041
     Dates: start: 20110201
  14. ACIDOPHILUS [Concomitant]
     Dosage: 1 TABLET
     Route: 048
     Dates: start: 20110826
  15. TYLENOL (CAPLET) [Concomitant]
     Dosage: 1000 MILLIGRAM
     Route: 048
     Dates: start: 20111121, end: 20111202
  16. LENALIDOMIDE [Suspect]
     Dosage: 25 MILLIGRAM
     Route: 048
     Dates: start: 20111005
  17. AMLODIPINE [Concomitant]
     Indication: HYPERTENSION
     Dosage: 10 MILLIGRAM
     Route: 048
     Dates: start: 20110909
  18. POTASSIUM CHLORIDE [Concomitant]
     Indication: SUPPLEMENTATION THERAPY
     Dosage: 20 MILLIEQUIVALENTS
     Route: 048
     Dates: start: 20110918, end: 20110918
  19. LENALIDOMIDE [Suspect]
     Indication: PROSTATE CANCER
     Dosage: 25 MILLIGRAM
     Route: 048
     Dates: start: 20110721, end: 20110803
  20. DOCETAXEL [Suspect]
     Dosage: 140 MILLIGRAM
     Route: 041
     Dates: start: 20110901, end: 20110901
  21. ATENOLOL [Concomitant]
     Indication: HYPERTENSION
     Dosage: 50 MILLIGRAM
     Route: 048
     Dates: start: 20110713
  22. OXYCODONE HCL [Concomitant]
     Indication: BACK PAIN
     Dosage: 5-10MG
     Route: 048
     Dates: start: 20110901
  23. LISINOPRIL [Concomitant]
     Indication: HYPERTENSION
     Dosage: 10 MILLIGRAM
     Route: 048
     Dates: start: 20090909, end: 20110929
  24. BACTRIM [Concomitant]
     Dosage: 160/800MG
     Route: 048
     Dates: start: 20111202, end: 20111212
  25. PREDNISONE [Suspect]
     Indication: PROSTATE CANCER
     Dosage: 5 MILLIGRAM
     Route: 048
     Dates: start: 20110721, end: 20110810
  26. LOVENOX [Concomitant]
     Indication: PROPHYLAXIS
     Dosage: 40 MILLIGRAM
     Route: 058
     Dates: start: 20110915, end: 20110923
  27. AMOXICILLIN [Concomitant]
     Dosage: 500 MILLIGRAM
     Route: 048
     Dates: start: 20110821, end: 20110830
  28. RED BLOOD CELLS [Concomitant]
     Dosage: 2 UNITS
     Route: 041
     Dates: start: 20110915, end: 20110915
  29. DOCETAXEL [Suspect]
     Indication: PROSTATE CANCER
     Dosage: 140 MILLIGRAM
     Route: 041
     Dates: start: 20110721, end: 20110721
  30. CALCIUM 600 + VITAMIN D [Concomitant]
     Indication: VITAMIN SUPPLEMENTATION
     Dosage: 1 TABLET
     Route: 048
     Dates: start: 20091221
  31. DECADRON [Concomitant]
     Dosage: 8 MILLIGRAM
     Route: 048
     Dates: start: 20110720, end: 20110722
  32. DECADRON [Concomitant]
     Dosage: 8 MILLIGRAM
     Route: 048
     Dates: start: 20111004, end: 20111006
  33. POTASSIUM CHLORIDE [Concomitant]
     Dosage: 40 MILLIEQUIVALENTS
     Route: 048
     Dates: start: 20110918, end: 20110918

REACTIONS (1)
  - SEPSIS [None]
